FAERS Safety Report 8591870-4 (Version None)
Quarter: 2012Q3

REPORT INFORMATION
  Report Type: 
  Country: None (occurrence: None)
  Receive Date: 20120814
  Receipt Date: 20120810
  Transmission Date: 20120928
  Serious: Yes (Other)
  Sender: FDA-Public Use
  Company Number: PHHY2012CA069805

PATIENT
  Sex: Female

DRUGS (2)
  1. BOTOX [Concomitant]
     Indication: OESOPHAGEAL ACHALASIA
     Dosage: INJECTIONS TWICE A YEAR
  2. ZOLEDRONOC ACID [Suspect]
     Indication: OSTEOPOROSIS
     Dosage: UNK UKN, UNK
     Route: 042
     Dates: start: 20111024

REACTIONS (2)
  - FATIGUE [None]
  - MYASTHENIA GRAVIS [None]
